FAERS Safety Report 16942686 (Version 1)
Quarter: 2019Q4

REPORT INFORMATION
  Report Type: Spontaneous
  Country: US (occurrence: US)
  Receive Date: 20191021
  Receipt Date: 20191021
  Transmission Date: 20200122
  Serious: No
  Sender: FDA-Public Use
  Company Number: US-009507513-1910USA006886

PATIENT
  Sex: Male

DRUGS (5)
  1. LEVODOPA [Suspect]
     Active Substance: LEVODOPA
     Indication: PARKINSON^S DISEASE
     Dosage: 84 MILLIGRAM, PRN
  2. SINEMET CR [Suspect]
     Active Substance: CARBIDOPA\LEVODOPA
     Route: 048
  3. VITAMIN D (UNSPECIFIED) [Concomitant]
     Active Substance: VITAMIN D NOS
  4. SINEMET CR [Suspect]
     Active Substance: CARBIDOPA\LEVODOPA
     Dosage: 25/250 (UNITS NOT REPORTED) AT BEDTIME
     Route: 048
  5. ENTACAPONE. [Concomitant]
     Active Substance: ENTACAPONE

REACTIONS (3)
  - Movement disorder [Recovering/Resolving]
  - Anxiety [Not Recovered/Not Resolved]
  - Middle insomnia [Not Recovered/Not Resolved]
